FAERS Safety Report 13234228 (Version 1)
Quarter: 2017Q1

REPORT INFORMATION
  Report Type: Report from Study
  Country: None (occurrence: BR)
  Receive Date: 20170215
  Receipt Date: 20170215
  Transmission Date: 20170428
  Serious: Yes (Other)
  Sender: FDA-Public Use
  Company Number: BR-ABBVIE-17P-020-1872107-00

PATIENT
  Age: 22 Year
  Sex: Male
  Weight: 70 kg

DRUGS (3)
  1. HUMIRA [Suspect]
     Active Substance: ADALIMUMAB
     Indication: ANKYLOSING SPONDYLITIS
     Route: 058
     Dates: start: 20161106
  2. ESOMEPRAZOLE [Concomitant]
     Active Substance: ESOMEPRAZOLE
     Indication: GASTRIC DISORDER
     Route: 048
     Dates: start: 201610
  3. TANDRILAX [Concomitant]
     Active Substance: ACETAMINOPHEN\CAFFEINE\CARISOPRODOL\DICLOFENAC SODIUM
     Indication: ANKYLOSING SPONDYLITIS
     Route: 048
     Dates: start: 201610

REACTIONS (3)
  - Sepsis [Unknown]
  - Gastrointestinal disorder [Not Recovered/Not Resolved]
  - Inflammation [Unknown]

NARRATIVE: CASE EVENT DATE: 20170206
